FAERS Safety Report 7732939-3 (Version None)
Quarter: 2011Q3

REPORT INFORMATION
  Report Type: 
  Country: None (occurrence: None)
  Receive Date: 20110907
  Receipt Date: 20110901
  Transmission Date: 20111222
  Serious: Yes (Other)
  Sender: FDA-Public Use
  Company Number: JP-PFIZER INC-2011203773

PATIENT
  Age: 84 Year
  Sex: Male
  Weight: 55 kg

DRUGS (8)
  1. VARENICLINE TARTRATE [Suspect]
     Indication: SMOKING CESSATION THERAPY
     Dosage: 1 MG, 2X/DAY
     Route: 048
     Dates: end: 20110810
  2. LANSOPRAZOLE [Concomitant]
     Dosage: 15 MG
  3. CRESTOR [Concomitant]
     Dosage: 2.5 MG
  4. DUTASTERIDE [Concomitant]
     Dosage: 0.5 MG
  5. LASIX [Concomitant]
     Dosage: 20 MG
  6. AMLODIPINE [Concomitant]
     Dosage: 5 MG
  7. ADOAIR DISKUS [Concomitant]
     Dosage: UNK
  8. URIEF [Concomitant]
     Dosage: 4 MG

REACTIONS (3)
  - DECREASED APPETITE [None]
  - ALTERED STATE OF CONSCIOUSNESS [None]
  - MALAISE [None]
